FAERS Safety Report 9306499 (Version 1)
Quarter: 2013Q2

REPORT INFORMATION
  Report Type: Spontaneous
  Country: US (occurrence: US)
  Receive Date: 20130523
  Receipt Date: 20130523
  Transmission Date: 20140414
  Serious: Yes (Hospitalization)
  Sender: FDA-Public Use
  Company Number: US-UCBSA-084685

PATIENT
  Age: 41 Year
  Sex: Male
  Weight: 91.62 kg

DRUGS (4)
  1. KEPPRA XR [Suspect]
     Indication: CONVULSION
  2. NORVIR [Concomitant]
     Indication: HIV INFECTION
  3. REYATAZ [Concomitant]
     Indication: HIV INFECTION
  4. TRUVADA [Concomitant]
     Indication: HIV INFECTION

REACTIONS (4)
  - Convulsion [Recovered/Resolved]
  - Blood potassium decreased [Recovered/Resolved]
  - Blood sodium decreased [Recovered/Resolved]
  - Inappropriate schedule of drug administration [Unknown]
